FAERS Safety Report 6703221-8 (Version None)
Quarter: 2010Q2

REPORT INFORMATION
  Report Type: 
  Country: None (occurrence: None)
  Receive Date: 20100430
  Receipt Date: 20100420
  Transmission Date: 20101027
  Serious: Yes (Hospitalization, Other)
  Sender: FDA-Public Use
  Company Number: AU-JNJFOC-20090104560

PATIENT
  Sex: Female
  Weight: 66 kg

DRUGS (8)
  1. DURAGESIC-100 [Suspect]
     Indication: FIBROMYALGIA
     Route: 062
  2. DURAGESIC-100 [Suspect]
     Route: 062
  3. DURAGESIC-100 [Suspect]
     Indication: SCIATICA
     Route: 062
  4. DURAGESIC-100 [Suspect]
     Route: 062
  5. MOCLOBEMIDE [Interacting]
     Indication: DRUG USE FOR UNKNOWN INDICATION
  6. ACETAMINOPHEN W/ CODEINE [Concomitant]
     Indication: BREAKTHROUGH PAIN
     Dosage: PRN
  7. ENDONE [Concomitant]
     Indication: BREAKTHROUGH PAIN
     Dosage: 15 MG/DAY
  8. VALIUM [Concomitant]
     Indication: BREAKTHROUGH PAIN
     Dosage: PRN

REACTIONS (7)
  - CONFUSIONAL STATE [None]
  - DRUG INEFFECTIVE [None]
  - DRUG INTERACTION [None]
  - HOSPITALISATION [None]
  - HYPOTENSION [None]
  - MENTAL IMPAIRMENT [None]
  - VISION BLURRED [None]
